FAERS Safety Report 5457391-2 (Version None)
Quarter: 2007Q3

REPORT INFORMATION
  Report Type: 
  Country: None (occurrence: None)
  Receive Date: 20070918
  Receipt Date: 20070523
  Transmission Date: 20080115
  Serious: Yes (Hospitalization)
  Sender: FDA-Public Use
  Company Number: US-ASTRAZENECA-2007UW03898

PATIENT
  Age: 10630 Day
  Sex: Male
  Weight: 107.3 kg

DRUGS (1)
  1. SEROQUEL [Suspect]
     Route: 048

REACTIONS (2)
  - OVERDOSE [None]
  - SYNCOPE [None]
